FAERS Safety Report 9814886 (Version 4)
Quarter: 2014Q2

REPORT INFORMATION
  Report Type: Spontaneous
  Country: JP (occurrence: JP)
  Receive Date: 20140113
  Receipt Date: 20140401
  Transmission Date: 20141212
  Serious: Yes (Hospitalization)
  Sender: FDA-Public Use
  Company Number: JP-GLAXOSMITHKLINE-B0959413A

PATIENT
  Age: 72 Year
  Sex: Male
  Weight: 62 kg

DRUGS (5)
  1. VALTREX [Suspect]
     Indication: HERPES ZOSTER
     Dosage: 1000MG THREE TIMES PER DAY
     Route: 048
     Dates: start: 20131227, end: 20140102
  2. ANGIOTENSIN II ANTAGONIST [Concomitant]
     Indication: HYPERTENSION
     Dosage: 20MG PER DAY
     Route: 048
     Dates: start: 20131217, end: 20140102
  3. CRESTOR [Concomitant]
     Indication: HYPERCHOLESTEROLAEMIA
     Dosage: 2.5MG PER DAY
     Route: 048
     Dates: start: 20101113
  4. ADALAT-CR [Concomitant]
     Indication: HYPERTENSION
     Dosage: 20MG TWICE PER DAY
     Route: 048
     Dates: start: 20101221
  5. CARDENALIN [Concomitant]
     Indication: HYPERTENSION
     Dosage: .5MG PER DAY
     Route: 048
     Dates: start: 20131217

REACTIONS (4)
  - Renal impairment [Recovered/Resolved]
  - Dehydration [Unknown]
  - Kidney enlargement [Unknown]
  - Dysarthria [Unknown]
